FAERS Safety Report 25146492 (Version 3)
Quarter: 2025Q2

REPORT INFORMATION
  Report Type: Spontaneous
  Country: DE (occurrence: DE)
  Receive Date: 20250401
  Receipt Date: 20250626
  Transmission Date: 20250717
  Serious: Yes (Other)
  Sender: AMGEN
  Company Number: DE-002147023-NVSC2025DE052830

PATIENT
  Age: 52 Year
  Sex: Female

DRUGS (1)
  1. AIMOVIG [Suspect]
     Active Substance: ERENUMAB-AOOE
     Indication: Migraine
     Route: 065
     Dates: start: 202411, end: 202502

REACTIONS (3)
  - Electrocardiogram ST segment elevation [Unknown]
  - Myocardial infarction [Not Recovered/Not Resolved]
  - Lacunar infarction [Recovered/Resolved]
